FAERS Safety Report 4704542-0 (Version None)
Quarter: 2005Q3

REPORT INFORMATION
  Report Type: 
  Country: None (occurrence: None)
  Receive Date: 20050629
  Receipt Date: 20050620
  Transmission Date: 20060218
  Serious: Yes (Death, Hospitalization)
  Sender: FDA-Public Use
  Company Number: 2003US005144

PATIENT
  Age: 50 Year
  Sex: Male

DRUGS (9)
  1. AMBISOME [Suspect]
     Indication: INFECTION
     Dosage: IV NOS
     Route: 042
     Dates: start: 20030101, end: 20030117
  2. VFEND [Suspect]
     Indication: INFECTION
     Dosage: 400.00 MG BID
     Dates: start: 20021227, end: 20021231
  3. FLUDARABINE [Suspect]
     Indication: ACUTE MYELOID LEUKAEMIA
     Dosage: 55.00 MG, UID/QD, IV NOS
     Route: 042
     Dates: start: 20021227, end: 20021231
  4. CYTARABINE [Suspect]
     Indication: ACUTE LEUKAEMIA
     Dosage: 2600.00 MG, UID/QD, IV NOS
     Route: 042
     Dates: start: 20021227, end: 20021231
  5. TEICOPLANIN [Concomitant]
  6. ACYCLOVIR [Concomitant]
  7. COTRIM [Concomitant]
  8. OMEPRAZOLE [Concomitant]
  9. CIPROFLOXACIN [Concomitant]

REACTIONS (5)
  - CARDIAC TAMPONADE [None]
  - ENDOCARDITIS [None]
  - NEUROPATHY PERIPHERAL [None]
  - PARAINFLUENZAE VIRUS INFECTION [None]
  - PERICARDIAL HAEMORRHAGE [None]
